FAERS Safety Report 15130611 (Version 2)
Quarter: 2019Q1

REPORT INFORMATION
  Report Type: Spontaneous
  Country: FR (occurrence: FR)
  Receive Date: 20180711
  Receipt Date: 20190325
  Transmission Date: 20190417
  Serious: Yes (Other)
  Sender: FDA-Public Use
  Company Number: FR-JNJFOC-20180708499

PATIENT
  Age: 36 Year
  Sex: Male

DRUGS (4)
  1. TEMESTA (LORAZEPAM) [Suspect]
     Active Substance: LORAZEPAM
     Indication: DEPRESSION
     Route: 048
     Dates: start: 2014, end: 201804
  2. RISPERDAL [Suspect]
     Active Substance: RISPERIDONE
     Indication: DEPRESSION
     Route: 048
     Dates: start: 2014, end: 20180502
  3. VENTOLINE [Concomitant]
     Active Substance: ALBUTEROL
     Route: 065
  4. VALIUM [Concomitant]
     Active Substance: DIAZEPAM
     Route: 065

REACTIONS (9)
  - Pyramidal tract syndrome [Recovered/Resolved]
  - Eyelid ptosis [Recovered/Resolved]
  - Oscillopsia [Recovered/Resolved]
  - Product use in unapproved indication [Unknown]
  - Head titubation [Recovered/Resolved]
  - Weight increased [Not Recovered/Not Resolved]
  - Off label use [Unknown]
  - Nictitating spasm [Recovering/Resolving]
  - Parinaud syndrome [Recovered/Resolved with Sequelae]

NARRATIVE: CASE EVENT DATE: 2014
